FAERS Safety Report 8613919-2 (Version None)
Quarter: 2012Q3

REPORT INFORMATION
  Report Type: 
  Country: None (occurrence: None)
  Receive Date: 20120823
  Receipt Date: 20120810
  Transmission Date: 20120928
  Serious: Yes (Hospitalization)
  Sender: FDA-Public Use
  Company Number: GB-009507513-1208GBR006024

PATIENT

DRUGS (2)
  1. VALPROATE SODIUM [Concomitant]
     Indication: EPILEPSY
  2. JANUVIA [Suspect]
     Route: 048

REACTIONS (1)
  - EPILEPSY [None]
